FAERS Safety Report 20707845 (Version 1)
Quarter: 2022Q2

REPORT INFORMATION
  Report Type: Spontaneous
  Country: US (occurrence: US)
  Receive Date: 20220414
  Receipt Date: 20220414
  Transmission Date: 20220721
  Serious: Yes (Hospitalization, Other)
  Sender: FDA-Public Use
  Company Number: US-STRIDES ARCOLAB LIMITED-2021SP029351

PATIENT
  Age: 16 Year
  Sex: Male

DRUGS (9)
  1. EFAVIRENZ [Suspect]
     Active Substance: EFAVIRENZ
     Indication: HIV infection WHO clinical stage I
     Dosage: 400 MILLIGRAM PER DAY (PILL) (PAEDIATRIC DOSE)
     Route: 065
     Dates: start: 2012
  2. EFAVIRENZ [Suspect]
     Active Substance: EFAVIRENZ
     Dosage: 600 MILLIGRAM PER DAY (PILL) (ADULT DOSE)
     Route: 065
     Dates: start: 2012
  3. ISONIAZID [Concomitant]
     Active Substance: ISONIAZID
     Indication: Antibiotic prophylaxis
     Dosage: 300 MILLIGRAM PER DAY
     Route: 065
  4. PYRIDOXINE [Concomitant]
     Active Substance: PYRIDOXINE
     Indication: Antibiotic prophylaxis
     Dosage: 25 MILLIGRAM PER DAY
     Route: 065
  5. ZIDOVUDINE [Concomitant]
     Active Substance: ZIDOVUDINE
     Indication: HIV infection WHO clinical stage I
     Dosage: UNK
     Route: 065
     Dates: start: 2012
  6. LAMIVUDINE [Concomitant]
     Active Substance: LAMIVUDINE
     Indication: HIV infection WHO clinical stage I
     Dosage: UNK
     Route: 065
     Dates: start: 2012
  7. LAMIVUDINE [Concomitant]
     Active Substance: LAMIVUDINE
     Dosage: UNK (COMBINATION WITH TENOFOVIR AND DOLUTEGRAVIR)
     Route: 065
  8. ARTEMETHER\LUMEFANTRINE [Concomitant]
     Active Substance: ARTEMETHER\LUMEFANTRINE
     Indication: Malaria
     Dosage: UNK
     Route: 065
  9. AMOXICILLIN/CLAVULANIC ACID [AMOXICILLIN SODIUM;CLAVULANATE POTASSIUM] [Concomitant]
     Indication: Tonsillitis
     Dosage: UNK
     Route: 065

REACTIONS (4)
  - Ataxia [Recovered/Resolved]
  - Encephalopathy [Recovered/Resolved]
  - Toxicity to various agents [Unknown]
  - Neurotoxicity [Recovered/Resolved]
